FAERS Safety Report 5788568-4 (Version None)
Quarter: 2008Q2

REPORT INFORMATION
  Report Type: 
  Country: None (occurrence: None)
  Receive Date: 20080625
  Receipt Date: 20080625
  Transmission Date: 20081010
  Serious: Yes (Hospitalization)
  Sender: FDA-Public Use
  Company Number: None

PATIENT
  Age: 75 Year
  Sex: Male
  Weight: 76.2905 kg

DRUGS (15)
  1. ABRAXANE [Suspect]
     Indication: NON-SMALL CELL LUNG CANCER
     Dosage: 78MG QWK IVPB
     Route: 042
     Dates: start: 20080414, end: 20080527
  2. CARBOPLATIN [Suspect]
     Dosage: 115MG QWK IVPB
     Route: 042
     Dates: start: 20080414, end: 20080527
  3. ALLOPURINOL [Concomitant]
  4. ASPIRIN [Concomitant]
  5. DIGOXIN [Concomitant]
  6. LOPRESSOR [Concomitant]
  7. ULTRAM [Concomitant]
  8. ZOCOR [Concomitant]
  9. LEXAPRO [Concomitant]
  10. REGLAN [Concomitant]
  11. EXFORGE [Concomitant]
  12. COUMADIN [Concomitant]
  13. AMIODARONE HCL [Concomitant]
  14. PENACTIN [Concomitant]
  15. FLOMAX [Concomitant]

REACTIONS (7)
  - BODY TEMPERATURE INCREASED [None]
  - COUGH [None]
  - DYSPNOEA [None]
  - HAEMOGLOBIN DECREASED [None]
  - MALAISE [None]
  - ORTHOSTATIC HYPOTENSION [None]
  - OXYGEN SATURATION DECREASED [None]
